FAERS Safety Report 11394286 (Version 1)
Quarter: 2015Q3

REPORT INFORMATION
  Report Type: Other
  Country: GB (occurrence: GB)
  Receive Date: 20150819
  Receipt Date: 20150819
  Transmission Date: 20151125
  Serious: Yes (Death, Other)
  Sender: FDA-Public Use
  Company Number: GB-TARO PHARMACEUTICALS USA.,INC-2015SUN00724

PATIENT
  Age: 80 Year
  Sex: Female
  Weight: 56 kg

DRUGS (4)
  1. MICONAZOLE. [Interacting]
     Active Substance: MICONAZOLE NITRATE
     Indication: ORAL CANDIDIASIS
     Dosage: UNK
     Route: 048
  2. TRAMADOL. [Concomitant]
     Active Substance: TRAMADOL
  3. PARACETAMOL [Concomitant]
     Active Substance: ACETAMINOPHEN
  4. WARFARIN [Suspect]
     Active Substance: WARFARIN
     Indication: ATRIAL FIBRILLATION
     Dosage: UNK
     Route: 065

REACTIONS (4)
  - Cerebral haemorrhage [Fatal]
  - Drug interaction [Not Recovered/Not Resolved]
  - Hemiplegia [Not Recovered/Not Resolved]
  - VIIth nerve paralysis [Not Recovered/Not Resolved]

NARRATIVE: CASE EVENT DATE: 20131030
